FAERS Safety Report 4922293-4 (Version None)
Quarter: 2006Q1

REPORT INFORMATION
  Report Type: 
  Country: None (occurrence: None)
  Receive Date: 20060224
  Receipt Date: 20051001
  Transmission Date: 20060701
  Serious: Yes (Hospitalization, Disabling, Other)
  Sender: FDA-Public Use
  Company Number: PR-MERCK-0510USA00775

PATIENT
  Age: 59 Year
  Sex: Male
  Weight: 55 kg

DRUGS (10)
  1. VIOXX [Suspect]
     Indication: ARTHRALGIA
     Route: 048
     Dates: start: 20020218, end: 20020218
  2. VIOXX [Suspect]
     Route: 048
     Dates: start: 20020219
  3. VIOXX [Suspect]
     Route: 048
     Dates: start: 20020718, end: 20020720
  4. VIOXX [Suspect]
     Route: 048
     Dates: start: 20020721
  5. VIOXX [Suspect]
     Route: 048
     Dates: start: 20030101, end: 20030101
  6. VIOXX [Suspect]
     Indication: BACK PAIN
     Route: 048
     Dates: start: 20020218, end: 20020218
  7. VIOXX [Suspect]
     Route: 048
     Dates: start: 20020219
  8. VIOXX [Suspect]
     Route: 048
     Dates: start: 20020718, end: 20020720
  9. VIOXX [Suspect]
     Route: 048
     Dates: start: 20020721
  10. VIOXX [Suspect]
     Route: 048
     Dates: start: 20030101, end: 20030101

REACTIONS (28)
  - ABDOMINAL PAIN UPPER [None]
  - ANGINA PECTORIS [None]
  - ANGIOPATHY [None]
  - ARRHYTHMIA [None]
  - ARTHROPATHY [None]
  - BRONCHITIS [None]
  - CARDIOVASCULAR DISORDER [None]
  - CEREBRAL INFARCTION [None]
  - CEREBROVASCULAR ACCIDENT [None]
  - CHEST PAIN [None]
  - COUGH [None]
  - DEPRESSION [None]
  - DIARRHOEA [None]
  - DRUG INEFFECTIVE [None]
  - DUODENITIS [None]
  - GASTRITIS [None]
  - HEADACHE [None]
  - HIATUS HERNIA [None]
  - INJURY [None]
  - LACUNAR INFARCTION [None]
  - MYOCARDIAL INFARCTION [None]
  - ORGAN FAILURE [None]
  - PAIN [None]
  - PULMONARY EMBOLISM [None]
  - PYREXIA [None]
  - RHEUMATOID ARTHRITIS [None]
  - TACHYCARDIA [None]
  - THROMBOSIS [None]
